FAERS Safety Report 18491844 (Version 1)
Quarter: 2020Q4

REPORT INFORMATION
  Report Type: Spontaneous
  Country: US (occurrence: US)
  Receive Date: 20201111
  Receipt Date: 20201111
  Transmission Date: 20210114
  Serious: No
  Sender: FDA-Public Use
  Company Number: US-STRONGBRIDGE BIOPHARMA-2020-STR-000259

PATIENT
  Sex: Male

DRUGS (5)
  1. TAGAMET [Concomitant]
     Active Substance: CIMETIDINE
  2. SINGULAIR [Concomitant]
     Active Substance: MONTELUKAST SODIUM
  3. OMEPRAZOLE. [Concomitant]
     Active Substance: OMEPRAZOLE
  4. KEVEYIS [Suspect]
     Active Substance: DICHLORPHENAMIDE
     Dosage: UNK
     Dates: start: 201711
  5. KEVEYIS [Suspect]
     Active Substance: DICHLORPHENAMIDE
     Indication: FAMILIAL PERIODIC PARALYSIS
     Dosage: 50 MG IN THE AM AND 100 MG IN THE PM
     Route: 048

REACTIONS (4)
  - Gastrointestinal disorder [Not Recovered/Not Resolved]
  - Condition aggravated [Unknown]
  - Disease recurrence [Unknown]
  - Weight decreased [Not Recovered/Not Resolved]
